FAERS Safety Report 5212659-X (Version None)
Quarter: 2007Q1

REPORT INFORMATION
  Report Type: 
  Country: None (occurrence: None)
  Receive Date: 20070118
  Receipt Date: 20070109
  Transmission Date: 20070707
  Serious: Yes (Other)
  Sender: FDA-Public Use
  Company Number: US-PFIZER INC-2007003345

PATIENT
  Sex: Female
  Weight: 105.7 kg

DRUGS (4)
  1. CHANTIX [Suspect]
     Indication: EX-SMOKER
  2. NEXIUM [Concomitant]
  3. MONTELUKAST [Concomitant]
  4. ALBUTEROL [Concomitant]

REACTIONS (6)
  - HAEMATEMESIS [None]
  - INCREASED BRONCHIAL SECRETION [None]
  - INCREASED UPPER AIRWAY SECRETION [None]
  - NAUSEA [None]
  - SOMNOLENCE [None]
  - VOMITING [None]
